FAERS Safety Report 8137362-8 (Version None)
Quarter: 2012Q1

REPORT INFORMATION
  Report Type: 
  Country: None (occurrence: None)
  Receive Date: 20120215
  Receipt Date: 20120203
  Transmission Date: 20120608
  Serious: Yes (Other)
  Sender: FDA-Public Use
  Company Number: CA-JNJFOC-20120203177

PATIENT
  Sex: Male
  Weight: 90.9 kg

DRUGS (1)
  1. REMICADE [Suspect]
     Indication: CROHN'S DISEASE
     Dosage: 10 INFUSIONS
     Route: 042

REACTIONS (2)
  - EXTRASYSTOLES [None]
  - PALPITATIONS [None]
